FAERS Safety Report 7675403-2 (Version None)
Quarter: 2011Q3

REPORT INFORMATION
  Report Type: 
  Country: None (occurrence: None)
  Receive Date: 20110810
  Receipt Date: 20110714
  Transmission Date: 20111222
  Serious: Yes (Death, Other)
  Sender: FDA-Public Use
  Company Number: US-BAXTER-2010BH003171

PATIENT
  Age: 53 Year
  Sex: Female
  Weight: 58 kg

DRUGS (30)
  1. HEPARIN SODIUM INJECTION [Suspect]
     Indication: INTRAVENOUS CATHETER MANAGEMENT
     Route: 065
     Dates: start: 20071221
  2. HEPARIN SODIUM INJECTION [Suspect]
     Route: 042
     Dates: start: 20071203, end: 20080103
  3. HEPARIN SODIUM INJECTION [Suspect]
     Route: 065
     Dates: start: 20080104, end: 20080214
  4. DIGOXIN [Concomitant]
     Indication: PRODUCT USED FOR UNKNOWN INDICATION
     Route: 042
  5. PANTOPRAZOLE [Concomitant]
     Indication: PRODUCT USED FOR UNKNOWN INDICATION
     Route: 048
  6. COLACE [Concomitant]
     Indication: PRODUCT USED FOR UNKNOWN INDICATION
     Route: 065
  7. HEPARIN SODIUM INJECTION [Suspect]
     Indication: CATHETERISATION CARDIAC
     Route: 065
     Dates: start: 20071221
  8. HEPARIN SODIUM INJECTION [Suspect]
     Route: 065
     Dates: start: 20071203, end: 20071203
  9. HEPARIN SODIUM INJECTION [Suspect]
     Route: 042
     Dates: start: 20071203, end: 20080103
  10. HEPARIN SODIUM 1,000 UNITS AND SODIUM CHLORIDE 0.9% [Suspect]
     Indication: PRODUCT USED FOR UNKNOWN INDICATION
     Route: 042
     Dates: start: 20071203, end: 20080103
  11. HEPARIN SODIUM INJECTION [Suspect]
     Indication: CORONARY ARTERY BYPASS
     Route: 065
     Dates: start: 20071221
  12. HEPARIN SODIUM INJECTION [Suspect]
     Route: 065
     Dates: start: 20071203, end: 20071203
  13. HEPARIN SODIUM INJECTION [Suspect]
     Route: 065
     Dates: start: 20080104, end: 20080214
  14. ALBUTEROL SULFATE AUTOHALER [Concomitant]
     Indication: PRODUCT USED FOR UNKNOWN INDICATION
     Route: 065
  15. ASPIRIN [Concomitant]
     Indication: PRODUCT USED FOR UNKNOWN INDICATION
     Route: 065
  16. SEROQUEL [Concomitant]
     Indication: PRODUCT USED FOR UNKNOWN INDICATION
     Route: 065
  17. ZOLOFT [Concomitant]
     Indication: PRODUCT USED FOR UNKNOWN INDICATION
     Route: 065
  18. HEPARIN SODIUM INJECTION [Suspect]
     Route: 065
     Dates: start: 20071203, end: 20071203
  19. HEPARIN SODIUM INJECTION [Suspect]
     Route: 065
     Dates: start: 20080104, end: 20080214
  20. LASIX [Concomitant]
     Indication: PRODUCT USED FOR UNKNOWN INDICATION
     Route: 042
  21. PREVACID [Concomitant]
     Indication: PRODUCT USED FOR UNKNOWN INDICATION
     Route: 065
  22. HEPARIN SODIUM INJECTION [Suspect]
     Route: 042
     Dates: start: 20071203, end: 20080103
  23. ATROVENT [Concomitant]
     Indication: PRODUCT USED FOR UNKNOWN INDICATION
     Route: 055
  24. TRICOR [Concomitant]
     Indication: PRODUCT USED FOR UNKNOWN INDICATION
     Route: 065
  25. NICOTINE [Concomitant]
     Indication: PRODUCT USED FOR UNKNOWN INDICATION
     Route: 065
  26. HEPARIN SODIUM 5,000 UNITS IN DEXTROSE 5% [Suspect]
     Indication: PRODUCT USED FOR UNKNOWN INDICATION
     Route: 042
     Dates: start: 20071203, end: 20071221
  27. CLONAZEPAM [Concomitant]
     Indication: PRODUCT USED FOR UNKNOWN INDICATION
     Route: 065
  28. PLAVIX [Concomitant]
     Indication: PRODUCT USED FOR UNKNOWN INDICATION
     Route: 065
  29. NYSTATIN [Concomitant]
     Indication: PRODUCT USED FOR UNKNOWN INDICATION
     Route: 048
  30. POTASSIUM CHLORIDE [Concomitant]
     Indication: PRODUCT USED FOR UNKNOWN INDICATION
     Route: 048

REACTIONS (26)
  - HALLUCINATION [None]
  - CULTURE URINE POSITIVE [None]
  - OROPHARYNGEAL PAIN [None]
  - HYPERHIDROSIS [None]
  - THROMBOSIS [None]
  - DIARRHOEA [None]
  - ABDOMINAL PAIN UPPER [None]
  - RASH [None]
  - CHRONIC OBSTRUCTIVE PULMONARY DISEASE [None]
  - HYPOTENSION [None]
  - CORONARY ARTERY DISEASE [None]
  - SEPSIS [None]
  - ENTEROCOCCAL INFECTION [None]
  - OCCULT BLOOD POSITIVE [None]
  - ATRIAL FIBRILLATION [None]
  - ANAEMIA [None]
  - THROMBOCYTOPENIA [None]
  - CARDIO-RESPIRATORY ARREST [None]
  - PNEUMONIA [None]
  - DYSPNOEA [None]
  - ANXIETY [None]
  - CARDIAC FAILURE CONGESTIVE [None]
  - PLEURAL EFFUSION [None]
  - RESPIRATORY FAILURE [None]
  - BRADYCARDIA [None]
  - VOMITING [None]
